FAERS Safety Report 22043083 (Version 4)
Quarter: 2024Q3

REPORT INFORMATION
  Report Type: Spontaneous
  Country: GR (occurrence: GR)
  Receive Date: 20230228
  Receipt Date: 20240806
  Transmission Date: 20241017
  Serious: Yes (Other)
  Sender: ROCHE
  Company Number: None

PATIENT
  Age: 63 Year
  Sex: Female

DRUGS (7)
  1. ADO-TRASTUZUMAB EMTANSINE [Suspect]
     Active Substance: ADO-TRASTUZUMAB EMTANSINE
     Indication: HER2 positive breast cancer
     Dosage: UNK
     Route: 065
  2. ADO-TRASTUZUMAB EMTANSINE [Suspect]
     Active Substance: ADO-TRASTUZUMAB EMTANSINE
     Indication: Breast cancer metastatic
  3. TRASTUZUMAB [Suspect]
     Active Substance: TRASTUZUMAB
     Indication: Breast cancer metastatic
     Dosage: UNK
     Route: 065
  4. CAPECITABINE [Suspect]
     Active Substance: CAPECITABINE
     Indication: Breast cancer metastatic
     Dosage: UNK
     Route: 065
  5. TUKYSA [Suspect]
     Active Substance: TUCATINIB
     Indication: Breast cancer metastatic
     Dosage: UNK
     Route: 065
  6. TUKYSA [Suspect]
     Active Substance: TUCATINIB
     Indication: HER2 positive breast cancer
     Dosage: UNK
     Route: 065
  7. TUKYSA [Suspect]
     Active Substance: TUCATINIB
     Dosage: UNK
     Route: 065

REACTIONS (4)
  - Malignant neoplasm progression [Unknown]
  - Diarrhoea [Unknown]
  - Fatigue [Unknown]
  - Erythema [Unknown]
